FAERS Safety Report 17845200 (Version 1)
Quarter: 2020Q2

REPORT INFORMATION
  Report Type: Spontaneous
  Country: US (occurrence: US)
  Receive Date: 20200601
  Receipt Date: 20200601
  Transmission Date: 20200714
  Serious: No
  Sender: FDA-Public Use
  Company Number: US-AUROBINDO-AUR-APL-2019-029416

PATIENT
  Sex: Female
  Weight: 81 kg

DRUGS (2)
  1. HYDROCODONE BITARTRATE AND ACETAMINOPHEN TABLETS USP 10 MG/325 MG [Suspect]
     Active Substance: ACETAMINOPHEN\HYDROCODONE BITARTRATE
     Indication: PAIN
  2. HYDROCODONE BITARTRATE AND ACETAMINOPHEN TABLETS USP 10 MG/325 MG [Suspect]
     Active Substance: ACETAMINOPHEN\HYDROCODONE BITARTRATE
     Indication: INTERVERTEBRAL DISC PROTRUSION
     Dosage: UNK, 1 TABLET FOR EVERY 8 HRS
     Route: 065

REACTIONS (2)
  - Product substitution issue [Unknown]
  - Drug ineffective [Unknown]
